FAERS Safety Report 17257178 (Version 1)
Quarter: 2020Q1

REPORT INFORMATION
  Report Type: Spontaneous
  Country: US (occurrence: US)
  Receive Date: 20200109
  Receipt Date: 20200109
  Transmission Date: 20200409
  Serious: Yes (Hospitalization)
  Sender: FDA-Public Use
  Company Number: None

PATIENT
  Sex: Female

DRUGS (13)
  1. PRAVASTATIN. [Concomitant]
     Active Substance: PRAVASTATIN
  2. SUCRALFATE. [Concomitant]
     Active Substance: SUCRALFATE
  3. CELECOXIB. [Concomitant]
     Active Substance: CELECOXIB
  4. TAMSULOSIN [Concomitant]
     Active Substance: TAMSULOSIN
  5. VENLAFAXINE [Concomitant]
     Active Substance: VENLAFAXINE HYDROCHLORIDE
  6. ESCITALOPRAM [Concomitant]
     Active Substance: ESCITALOPRAM OXALATE
  7. NIFEDIPINE. [Concomitant]
     Active Substance: NIFEDIPINE
  8. OMEPRAZOLE. [Concomitant]
     Active Substance: OMEPRAZOLE
  9. HUMIRA [Suspect]
     Active Substance: ADALIMUMAB
     Indication: RHEUMATOID ARTHRITIS
     Dosage: ?          OTHER FREQUENCY:EVERY 2 WEEKS;?
     Route: 058
     Dates: start: 20171207
  10. DOXYCYCL HYC [Concomitant]
  11. DULOXETINE. [Concomitant]
     Active Substance: DULOXETINE
  12. FOLIC ACID. [Concomitant]
     Active Substance: FOLIC ACID
  13. OXCARBAZEPIN [Concomitant]
     Active Substance: OXCARBAZEPINE

REACTIONS (5)
  - Rheumatoid arthritis [None]
  - Neck pain [None]
  - Musculoskeletal pain [None]
  - Abdominal pain upper [None]
  - Abdominal discomfort [None]
